FAERS Safety Report 16819367 (Version 1)
Quarter: 2019Q3

REPORT INFORMATION
  Report Type: Spontaneous
  Country: IE (occurrence: IE)
  Receive Date: 20190917
  Receipt Date: 20190917
  Transmission Date: 20191005
  Serious: Yes (Disabling)
  Sender: FDA-Public Use
  Company Number: IE-MYLANLABS-2019M1086139

PATIENT

DRUGS (4)
  1. CIPROFLOXACIN. [Suspect]
     Active Substance: CIPROFLOXACIN
     Indication: PROSTATITIS
     Dosage: UNK
  2. UROREC [Concomitant]
     Active Substance: SILODOSIN
     Dosage: 8 MG, UNK
  3. STATIN                             /00036501/ [Concomitant]
     Active Substance: NYSTATIN
     Dosage: UNK
  4. ASPIRIN                            /00002701/ [Concomitant]
     Active Substance: ASPIRIN
     Dosage: 5 MG, UNK

REACTIONS (2)
  - Wrong technique in product usage process [Unknown]
  - Tendon discomfort [Unknown]
